FAERS Safety Report 8824247 (Version 1)
Quarter: 2012Q4

REPORT INFORMATION
  Report Type: 
  Country: JP (occurrence: JP)
  Receive Date: 20121004
  Receipt Date: 20121004
  Transmission Date: 20130627
  Serious: Yes (Hospitalization)
  Sender: FDA-Public Use
  Company Number: JP-009507513-2012SP012275

PATIENT
  Age: 65 Year
  Sex: Female
  Weight: 46 kg

DRUGS (17)
  1. RIBAVIRIN [Suspect]
     Indication: HEPATITIS C
     Dosage: 600 mg, QD
     Route: 048
     Dates: start: 20120124, end: 20120130
  2. RIBAVIRIN [Suspect]
     Dosage: 400 mg, QD
     Route: 048
     Dates: start: 20120131, end: 20120223
  3. RIBAVIRIN [Suspect]
     Dosage: 200 mg, QD
     Route: 048
     Dates: start: 20120224, end: 20120227
  4. RIBAVIRIN [Suspect]
     Dosage: 400 mg, QD
     Route: 048
     Dates: start: 20120306, end: 20120403
  5. PEG-INTRON [Suspect]
     Indication: HEPATITIS C
     Dosage: 1.5 ?g/kg, QW
     Route: 058
     Dates: start: 20120124, end: 20120403
  6. TELAVIC [Suspect]
     Indication: HEPATITIS C
     Dosage: 1500 mg QD
     Route: 048
     Dates: start: 20120124, end: 20120216
  7. TELAVIC [Suspect]
     Dosage: 1000 mg, QD
     Route: 048
     Dates: start: 20120306, end: 20120403
  8. GASMOTIN [Concomitant]
     Indication: PROPHYLAXIS
     Dosage: UPDATE (08MAY2012): FREQUENCY, FORMULATION : POR
     Route: 048
  9. SULPIRIDE [Concomitant]
     Indication: DECREASED APPETITE
     Dosage: UPDATE (08MAY2012): FREQUENCY, FORMULATION : POR
     Route: 048
     Dates: start: 20120128, end: 20120213
  10. ALLOPURINOL [Concomitant]
     Dosage: 200 mg, qd
     Route: 048
     Dates: start: 20120210, end: 20120221
  11. ALLOPURINOL [Concomitant]
     Dosage: 100 mg, qd
     Route: 048
     Dates: start: 20120222
  12. ZYLORIC [Concomitant]
     Indication: ANAEMIA
     Dosage: UPDATE (08MAY2012)
     Route: 065
     Dates: start: 20120207
  13. ETIZOLAM [Concomitant]
     Indication: PRODUCT USED FOR UNKNOWN INDICATION
     Dosage: UPDATE (08MAY2012)
     Route: 048
     Dates: start: 20120313
  14. PARIET [Concomitant]
     Indication: PROPHYLAXIS
     Dosage: UPDATE (08MAY2012)
     Route: 048
  15. CONIEL [Concomitant]
     Indication: HYPERTENSION
     Dosage: 4 mg, qd
     Route: 048
     Dates: start: 20120515
  16. NU-LOTAN TABLET 50 [Concomitant]
     Indication: HYPERTENSION
     Dosage: 50 mg, qd
     Route: 048
     Dates: start: 20120612
  17. PROMAC (POLAPREZINC) [Concomitant]
     Indication: PROPHYLAXIS
     Dosage: 1 g, qd
     Route: 048

REACTIONS (2)
  - Malaise [Recovering/Resolving]
  - Anaemia [Recovering/Resolving]
